FAERS Safety Report 5603909-6 (Version None)
Quarter: 2008Q1

REPORT INFORMATION
  Report Type: 
  Country: None (occurrence: None)
  Receive Date: 20080123
  Receipt Date: 20080114
  Transmission Date: 20080703
  Serious: Yes (Death, Hospitalization)
  Sender: FDA-Public Use
  Company Number: RENA-1000018

PATIENT
  Age: 72 Year
  Sex: Male

DRUGS (1)
  1. RENAGEL [Suspect]
     Indication: HYPERPHOSPHATAEMIA
     Dosage: ORAL
     Route: 048

REACTIONS (3)
  - CATHETER RELATED INFECTION [None]
  - GASTROINTESTINAL HAEMORRHAGE [None]
  - SEPSIS [None]
